FAERS Safety Report 7586399-6 (Version None)
Quarter: 2011Q3

REPORT INFORMATION
  Report Type: 
  Country: None (occurrence: None)
  Receive Date: 20110701
  Receipt Date: 20110623
  Transmission Date: 20111222
  Serious: Yes (Other)
  Sender: FDA-Public Use
  Company Number: A0933948A

PATIENT
  Age: 64 Year
  Sex: Female

DRUGS (2)
  1. ENALAPRIL MALEATE [Concomitant]
     Indication: HYPERTENSION
     Dosage: 20MGD PER DAY
  2. VALTREX [Suspect]
     Indication: HERPES ZOSTER
     Dosage: 1000MG THREE TIMES PER DAY
     Route: 048

REACTIONS (4)
  - TREMOR [None]
  - EXTRAPYRAMIDAL DISORDER [None]
  - ANXIETY [None]
  - NAUSEA [None]
